FAERS Safety Report 12388344 (Version 2)
Quarter: 2016Q2

REPORT INFORMATION
  Report Type: Spontaneous
  Country: FR (occurrence: FR)
  Receive Date: 20160520
  Receipt Date: 20160525
  Transmission Date: 20160815
  Serious: Yes (Hospitalization, Other)
  Sender: FDA-Public Use
  Company Number: FR-009507513-1605FRA007137

PATIENT
  Age: 45 Year
  Sex: Male

DRUGS (10)
  1. ASCORBIC ACID. [Concomitant]
     Active Substance: ASCORBIC ACID
     Dosage: 500MG, BID
     Route: 048
     Dates: start: 20151210
  2. NORVIR [Suspect]
     Active Substance: RITONAVIR
     Indication: HIV INFECTION
     Dosage: 1 DF, BID
     Route: 048
     Dates: start: 20151210, end: 20160406
  3. METHADONE HYDROCHLORIDE. [Concomitant]
     Active Substance: METHADONE HYDROCHLORIDE
     Dosage: 1 DF, QD
     Route: 048
  4. UVEDOSE [Concomitant]
     Active Substance: CHOLECALCIFEROL
     Dosage: 1 DF, EVERY THREE MONTHS
     Route: 048
     Dates: start: 20151210
  5. ISENTRESS [Suspect]
     Active Substance: RALTEGRAVIR POTASSIUM
     Indication: HIV INFECTION
     Dosage: 1 DF, BID
     Route: 048
     Dates: start: 20151210, end: 20160406
  6. PREZISTA [Suspect]
     Active Substance: DARUNAVIR ETHANOLATE
     Indication: HIV INFECTION
     Dosage: 1 DF, BID
     Dates: start: 20151210, end: 20160406
  7. DIAZEPAM. [Concomitant]
     Active Substance: DIAZEPAM
     Dosage: 10MG, TID
     Route: 048
     Dates: start: 20151209
  8. PANTOPRAZOLE [Concomitant]
     Active Substance: PANTOPRAZOLE SODIUM
     Dosage: 20 MG, QD
     Route: 048
     Dates: start: 20151209, end: 20160111
  9. LIPANTHYL [Concomitant]
     Active Substance: FENOFIBRATE
     Dosage: 1 DF, QD
     Route: 048
     Dates: start: 201511, end: 20160111
  10. PYRIDOXINE (+) THIAMINE [Concomitant]
     Dosage: 1 DF, TID
     Route: 048
     Dates: start: 20151209

REACTIONS (3)
  - Mixed liver injury [Recovering/Resolving]
  - Hypertriglyceridaemia [Recovering/Resolving]
  - Hypercholesterolaemia [Recovering/Resolving]

NARRATIVE: CASE EVENT DATE: 201601
